FAERS Safety Report 8148360-2 (Version None)
Quarter: 2012Q1

REPORT INFORMATION
  Report Type: 
  Country: None (occurrence: None)
  Receive Date: 20120218
  Receipt Date: 20110524
  Transmission Date: 20120608
  Serious: No
  Sender: FDA-Public Use
  Company Number: US-ALLERGAN-1107086US

PATIENT
  Age: 66 Year
  Sex: Female

DRUGS (1)
  1. BOTOX COSMETIC [Suspect]
     Indication: SKIN WRINKLING
     Dosage: UNK
     Route: 030
     Dates: start: 20101101, end: 20101101

REACTIONS (7)
  - SWELLING [None]
  - METAMORPHOPSIA [None]
  - MUSCLE TWITCHING [None]
  - EYELID SENSORY DISORDER [None]
  - PERIORBITAL OEDEMA [None]
  - FACIAL PARESIS [None]
  - INJECTION SITE PAIN [None]
